FAERS Safety Report 9197496 (Version 1)
Quarter: 2013Q1

REPORT INFORMATION
  Report Type: Spontaneous
  Country: FR (occurrence: FR)
  Receive Date: 20130328
  Receipt Date: 20130328
  Transmission Date: 20140127
  Serious: Yes (Life-Threatening, Other)
  Sender: FDA-Public Use
  Company Number: FR-BRISTOL-MYERS SQUIBB COMPANY-17447715

PATIENT
  Age: 60 Year
  Sex: Female

DRUGS (10)
  1. COUMADIN [Suspect]
     Indication: ATRIAL FIBRILLATION
     Route: 048
     Dates: start: 20130102, end: 20130107
  2. LOVENOX [Suspect]
     Indication: ATRIAL FIBRILLATION
     Route: 058
     Dates: start: 20121219, end: 20130107
  3. GLUCOPHAGE [Concomitant]
  4. LEVEMIR [Concomitant]
  5. APROVEL [Concomitant]
  6. AMLOR [Concomitant]
  7. JANUVIA [Concomitant]
  8. VENTOLINE [Concomitant]
  9. DIAMICRON [Concomitant]
  10. FLUDEX [Concomitant]

REACTIONS (2)
  - Abdominal wall haematoma [Not Recovered/Not Resolved]
  - Pleural effusion [Not Recovered/Not Resolved]
